FAERS Safety Report 18467182 (Version 1)
Quarter: 2020Q4

REPORT INFORMATION
  Report Type: Spontaneous
  Country: US (occurrence: US)
  Receive Date: 20201104
  Receipt Date: 20201104
  Transmission Date: 20210114
  Serious: Yes (Hospitalization)
  Sender: FDA-Public Use
  Company Number: None

PATIENT
  Sex: Female

DRUGS (1)
  1. PIQRAY [Suspect]
     Active Substance: ALPELISIB
     Indication: BREAST CANCER FEMALE
     Dosage: 2 X 150 MG 2 TABS ONCE DAILY ORAL
     Route: 048
     Dates: start: 20201008

REACTIONS (9)
  - Decreased appetite [None]
  - Mobility decreased [None]
  - Blood potassium decreased [None]
  - Stomatitis [None]
  - Dry skin [None]
  - Dehydration [None]
  - Fatigue [None]
  - Feeding disorder [None]
  - Asthenia [None]
